FAERS Safety Report 17586652 (Version 1)
Quarter: 2020Q1

REPORT INFORMATION
  Report Type: Spontaneous
  Country: US (occurrence: US)
  Receive Date: 20200326
  Receipt Date: 20200326
  Transmission Date: 20200409
  Serious: Yes (Other)
  Sender: FDA-Public Use
  Company Number: None

PATIENT
  Age: 32 Year
  Sex: Female
  Weight: 60 kg

DRUGS (2)
  1. COPAXONE [Suspect]
     Active Substance: GLATIRAMER ACETATE
  2. GLATIRAMER ACETATE. [Suspect]
     Active Substance: GLATIRAMER ACETATE
     Indication: MULTIPLE SCLEROSIS RELAPSE
     Route: 058
     Dates: start: 20200315, end: 20200315

REACTIONS (10)
  - Paraesthesia [None]
  - Nausea [None]
  - Hypoaesthesia oral [None]
  - Diarrhoea [None]
  - Paraesthesia oral [None]
  - Dyspnoea [None]
  - Flushing [None]
  - Vomiting [None]
  - Hypoaesthesia [None]
  - Multiple sclerosis relapse [None]

NARRATIVE: CASE EVENT DATE: 20200315
